FAERS Safety Report 17148016 (Version 1)
Quarter: 2019Q4

REPORT INFORMATION
  Report Type: Spontaneous
  Country: US (occurrence: US)
  Receive Date: 20191212
  Receipt Date: 20191212
  Transmission Date: 20200122
  Serious: No
  Sender: FDA-Public Use
  Company Number: US-SOMERSET-2019-US-000043

PATIENT
  Age: 65 Year
  Sex: Female

DRUGS (1)
  1. CYANOCOBALAMIN INJECTION - 1ML [Suspect]
     Active Substance: CYANOCOBALAMIN
     Route: 023
     Dates: start: 20190910, end: 20191003

REACTIONS (4)
  - Pruritus [Recovered/Resolved]
  - Fatigue [Recovered/Resolved]
  - Nausea [Recovered/Resolved]
  - Diarrhoea [Recovered/Resolved]

NARRATIVE: CASE EVENT DATE: 20190910
